FAERS Safety Report 9802275 (Version 1)
Quarter: 2014Q1

REPORT INFORMATION
  Report Type: Spontaneous
  Country: US (occurrence: US)
  Receive Date: 20140107
  Receipt Date: 20140107
  Transmission Date: 20141002
  Serious: Yes (Hospitalization)
  Sender: FDA-Public Use
  Company Number: US-BAXTER-2014BAX000049

PATIENT
  Age: 65 Year
  Sex: Female

DRUGS (6)
  1. DIANEAL PD2 [Suspect]
     Indication: RENAL FAILURE CHRONIC
     Route: 033
     Dates: end: 20131219
  2. DIANEAL PD2 [Suspect]
     Route: 033
     Dates: end: 20131219
  3. DIANEAL PD2 [Suspect]
     Route: 033
     Dates: start: 20131220
  4. DIANEAL PD2 [Suspect]
     Route: 033
     Dates: start: 20131220
  5. DIANEAL PD2 [Suspect]
     Indication: RENAL FAILURE CHRONIC
     Route: 033
     Dates: end: 20131219
  6. DIANEAL PD2 [Suspect]
     Route: 033
     Dates: start: 20131220

REACTIONS (2)
  - Hernia [Recovering/Resolving]
  - Intestinal obstruction [Recovering/Resolving]
